FAERS Safety Report 20026265 (Version 1)
Quarter: 2021Q4

REPORT INFORMATION
  Report Type: Spontaneous
  Country: US (occurrence: US)
  Receive Date: 20211102
  Receipt Date: 20211102
  Transmission Date: 20220303
  Serious: No
  Sender: FDA-Public Use
  Company Number: US-GALDERMA-US2021017463

PATIENT

DRUGS (2)
  1. DIFFERIN GEL [Suspect]
     Active Substance: ADAPALENE
     Indication: Acne
     Dosage: 1 DOSAGE FORM
     Route: 061
  2. RETINOL [Concomitant]
     Active Substance: RETINOL
     Indication: Product used for unknown indication

REACTIONS (3)
  - Skin irritation [Unknown]
  - Dry skin [Unknown]
  - Therapeutic response unexpected [Recovered/Resolved]
